FAERS Safety Report 13189807 (Version 1)
Quarter: 2017Q1

REPORT INFORMATION
  Report Type: Spontaneous
  Country: AR (occurrence: AR)
  Receive Date: 20170206
  Receipt Date: 20170206
  Transmission Date: 20170428
  Serious: Yes (Hospitalization, Other)
  Sender: FDA-Public Use
  Company Number: AR-ELI_LILLY_AND_COMPANY-AR201701011767

PATIENT
  Age: 0 Year
  Sex: Female
  Weight: 2.8 kg

DRUGS (4)
  1. HUMULIN N [Suspect]
     Active Substance: INSULIN HUMAN
     Indication: GESTATIONAL DIABETES
     Dosage: 6 U, EACH MORNING
     Route: 064
     Dates: start: 20161220, end: 20170118
  2. HUMULIN N [Suspect]
     Active Substance: INSULIN HUMAN
     Dosage: 6 U, EACH EVENING
     Route: 064
     Dates: start: 20161220, end: 20170118
  3. HUMULIN N [Suspect]
     Active Substance: INSULIN HUMAN
     Indication: GESTATIONAL DIABETES
     Dosage: 6 U, EACH MORNING
     Route: 064
     Dates: start: 20161220, end: 20170118
  4. HUMULIN N [Suspect]
     Active Substance: INSULIN HUMAN
     Dosage: 6 U, EACH EVENING
     Route: 064
     Dates: start: 20161220, end: 20170118

REACTIONS (4)
  - Premature baby [Recovered/Resolved]
  - Exposure during breast feeding [Not Recovered/Not Resolved]
  - Hypoglycaemia neonatal [Recovered/Resolved]
  - Tachycardia foetal [Recovered/Resolved]

NARRATIVE: CASE EVENT DATE: 201701
